FAERS Safety Report 9295116 (Version 1)
Quarter: 2013Q2

REPORT INFORMATION
  Report Type: Spontaneous
  Country: JP (occurrence: JP)
  Receive Date: 20130517
  Receipt Date: 20130517
  Transmission Date: 20140414
  Serious: Yes (Other)
  Sender: FDA-Public Use
  Company Number: JP-ASTELLAS-2011JP007587

PATIENT
  Age: 16 Year
  Sex: Male
  Weight: 52 kg

DRUGS (15)
  1. PROGRAF [Suspect]
     Indication: IMMUNOSUPPRESSANT DRUG THERAPY
     Dosage: UNK
     Route: 048
     Dates: start: 20110414, end: 20110421
  2. CELLCEPT                           /01275102/ [Concomitant]
     Indication: IMMUNOSUPPRESSANT DRUG THERAPY
     Dosage: UNK
     Route: 048
     Dates: start: 20110414
  3. PREDNISOLONE [Concomitant]
     Indication: IMMUNOSUPPRESSANT DRUG THERAPY
     Dosage: UNK
     Route: 048
     Dates: start: 20110414
  4. DOPAMINE HYDROCHLORIDE [Concomitant]
     Dosage: UNK
     Route: 041
     Dates: start: 2010
  5. FUROSEMIDE [Concomitant]
     Indication: CARDIAC FAILURE
     Dosage: 20 MG, UNKNOWN/D
     Route: 048
     Dates: start: 2008
  6. CARVEDILOL [Concomitant]
     Indication: CARDIAC FAILURE
     Dosage: 10 MG, UNKNOWN/D
     Route: 048
     Dates: start: 2008
  7. CANDESARTAN CILEXETIL [Concomitant]
     Indication: CARDIAC FAILURE
     Dosage: 4 MG, UNKNOWN/D
     Route: 048
     Dates: start: 2008
  8. HEPARIN [Concomitant]
     Dosage: UNK
     Route: 065
  9. ASPIRIN [Concomitant]
     Dosage: 100 MG, UNKNOWN/D
     Route: 048
  10. LUPRAC [Concomitant]
     Indication: CARDIAC FAILURE
     Dosage: 4 MG, UNKNOWN/D
     Route: 048
     Dates: start: 2008
  11. SPIRONOLACTONE [Concomitant]
     Indication: CARDIAC FAILURE
     Dosage: 25 MG, UNKNOWN/D
     Route: 048
     Dates: start: 2008
  12. PROPOFOL [Concomitant]
     Indication: SEDATION
     Dosage: UNK
     Route: 065
     Dates: start: 20110413
  13. DOBUTAMINE                         /00493402/ [Concomitant]
     Dosage: UNK
     Route: 065
     Dates: start: 201104
  14. MILRINONE [Concomitant]
     Dosage: UNK
     Route: 065
     Dates: start: 201104
  15. HANP [Concomitant]
     Dosage: UNK
     Route: 065
     Dates: start: 201104

REACTIONS (5)
  - Drug ineffective [Unknown]
  - Heart transplant rejection [Recovering/Resolving]
  - Renal failure acute [Recovering/Resolving]
  - Cardiac failure [Recovering/Resolving]
  - Nervous system disorder [Recovering/Resolving]
